FAERS Safety Report 7206053-X (Version None)
Quarter: 2010Q4

REPORT INFORMATION
  Report Type: 
  Country: None (occurrence: None)
  Receive Date: 20101229
  Receipt Date: 20101229
  Transmission Date: 20110411
  Serious: Yes (Other)
  Sender: FDA-Public Use
  Company Number: None

PATIENT
  Sex: Male
  Weight: 83.9154 kg

DRUGS (1)
  1. JALYN [Suspect]
     Indication: PROSTATOMEGALY
     Dosage: 0.5/0.4 1 DAILY MOUTH
     Route: 048
     Dates: start: 20101001, end: 20101204

REACTIONS (6)
  - ARTHRALGIA [None]
  - BACK PAIN [None]
  - ERECTILE DYSFUNCTION [None]
  - PAIN IN EXTREMITY [None]
  - PRURITUS [None]
  - URINE ODOUR ABNORMAL [None]
